FAERS Safety Report 23831213 (Version 1)
Quarter: 2024Q2

REPORT INFORMATION
  Report Type: Spontaneous
  Country: US (occurrence: None)
  Receive Date: 20240507
  Receipt Date: 20240507
  Transmission Date: 20240715
  Serious: Yes (Congenital Anomaly)
  Sender: FDA-Public Use
  Company Number: None

PATIENT
  Age: 0 Year
  Sex: Male
  Weight: 1.62 kg

DRUGS (6)
  1. MONTELUKAST [Suspect]
     Active Substance: MONTELUKAST SODIUM
     Dates: start: 20190721
  2. ONDANSETRON [Suspect]
     Active Substance: ONDANSETRON
     Dates: start: 20190829, end: 20200107
  3. DOXYLAMINE [Suspect]
     Active Substance: DOXYLAMINE
     Dates: start: 20190905
  4. ALBUTEROL [Suspect]
     Active Substance: ALBUTEROL
     Dates: start: 20190721
  5. LEVOCETIRIZINE [Suspect]
     Active Substance: LEVOCETIRIZINE
     Dates: start: 20200310
  6. ESTRADIOL TRANSDERMAL SYSTEM [Suspect]
     Active Substance: ESTRADIOL
     Dates: start: 20190721, end: 20200107

REACTIONS (11)
  - Premature baby [None]
  - Dysphagia [None]
  - Constricted ear deformity [None]
  - Caesarean section [None]
  - Complication of delivery [None]
  - Neonatal respiratory distress [None]
  - Infantile apnoea [None]
  - Tachypnoea [None]
  - Gastrooesophageal reflux in neonate [None]
  - Congenital skin dimples [None]
  - Foetal exposure during pregnancy [None]

NARRATIVE: CASE EVENT DATE: 20200526
